FAERS Safety Report 5711930-2 (Version None)
Quarter: 2008Q2

REPORT INFORMATION
  Report Type: 
  Country: None (occurrence: None)
  Receive Date: 20080421
  Receipt Date: 20080409
  Transmission Date: 20081010
  Serious: Yes (Hospitalization, Other)
  Sender: FDA-Public Use
  Company Number: US-ELI_LILLY_AND_COMPANY-US200804002330

PATIENT
  Sex: Female

DRUGS (3)
  1. PROZAC [Suspect]
     Indication: DEPRESSION
     Dosage: 20 MG, DAILY (1/D)
     Dates: start: 20000101, end: 20000101
  2. PROZAC [Suspect]
     Dosage: 40 MG, DAILY (1/D)
     Dates: start: 20000101
  3. PROTONIX [Concomitant]

REACTIONS (3)
  - GASTRIC BANDING [None]
  - STOMACH DISCOMFORT [None]
  - VOMITING [None]
